FAERS Safety Report 5436650-3 (Version None)
Quarter: 2007Q3

REPORT INFORMATION
  Report Type: 
  Country: None (occurrence: None)
  Receive Date: 20070831
  Receipt Date: 20070820
  Transmission Date: 20080115
  Serious: No
  Sender: FDA-Public Use
  Company Number: A0672221A

PATIENT
  Sex: Female

DRUGS (2)
  1. ALLI [Suspect]
  2. BIRTH CONTROL PILLS [Concomitant]

REACTIONS (1)
  - HEART RATE IRREGULAR [None]
